FAERS Safety Report 14816014 (Version 1)
Quarter: 2018Q2

REPORT INFORMATION
  Report Type: Report from Study
  Country: US (occurrence: US)
  Receive Date: 20180426
  Receipt Date: 20180426
  Transmission Date: 20180711
  Serious: No
  Sender: FDA-Public Use
  Company Number: US-AMGEN-USASL2018036031

PATIENT
  Age: 70 Year
  Sex: Female

DRUGS (1)
  1. REPATHA [Suspect]
     Active Substance: EVOLOCUMAB
     Indication: BLOOD CHOLESTEROL INCREASED
     Dosage: 140 MG, Q2WK
     Route: 065
     Dates: start: 20180129, end: 2018

REACTIONS (8)
  - Injection site pain [Unknown]
  - Pain [Unknown]
  - Headache [Unknown]
  - Rhinorrhoea [Unknown]
  - Cough [Not Recovered/Not Resolved]
  - Injection site bruising [Unknown]
  - Peripheral swelling [Unknown]
  - Back pain [Unknown]

NARRATIVE: CASE EVENT DATE: 2018
